FAERS Safety Report 5238391-4 (Version None)
Quarter: 2007Q1

REPORT INFORMATION
  Report Type: 
  Country: None (occurrence: None)
  Receive Date: 20061208
  Receipt Date: 20050318
  Transmission Date: 20070707
  Serious: Yes (Other)
  Sender: FDA-Public Use
  Company Number: 2005UW04301

PATIENT
  Age: 70 Year
  Sex: Female
  Weight: 65.77 kg

DRUGS (5)
  1. CRESTOR [Suspect]
     Indication: HYPERCHOLESTEROLAEMIA
     Dosage: 10 MG PO
     Route: 048
     Dates: start: 20040101
  2. FUROSEMIDE [Concomitant]
  3. DILTIAZEM [Concomitant]
  4. SYNTHROID [Concomitant]
  5. COUMADIN [Concomitant]

REACTIONS (1)
  - BLADDER DISORDER [None]
